FAERS Safety Report 6108590-8 (Version None)
Quarter: 2009Q1

REPORT INFORMATION
  Report Type: 
  Country: None (occurrence: None)
  Receive Date: 20090305
  Receipt Date: 20090225
  Transmission Date: 20090719
  Serious: Yes (Other)
  Sender: FDA-Public Use
  Company Number: 203089

PATIENT
  Age: 74 Year
  Sex: Female
  Weight: 38 kg

DRUGS (5)
  1. PRECEDEX  INJECTION 200?G HOSPIRA (DEXMEDETOMIDINE) [Suspect]
     Indication: SEDATIVE THERAPY
     Dosage: 15-20 UG/HR; INTRAVENOUS;  10 UG/HR  INTRAVENOUS  SEDATIVE THERAPY
     Route: 042
  2. (MTDAZOLAM) [Concomitant]
  3. FENTANYL-25 [Concomitant]
  4. SEVOFLURANE [Concomitant]
  5. (REMI FENTANTL) [Concomitant]

REACTIONS (4)
  - BLOOD PRESSURE INCREASED [None]
  - RESPIRATORY ACIDOSIS [None]
  - RESPIRATORY ARREST [None]
  - RESPIRATORY DEPRESSION [None]
